FAERS Safety Report 4588857-5 (Version None)
Quarter: 2005Q1

REPORT INFORMATION
  Report Type: 
  Country: None (occurrence: None)
  Receive Date: 20050222
  Receipt Date: 20041118
  Transmission Date: 20050727
  Serious: Yes (Other)
  Sender: FDA-Public Use
  Company Number: NL-GLAXOSMITHKLINE-B0362396A

PATIENT
  Age: 40 Year
  Sex: Female

DRUGS (1)
  1. ZYBAN [Suspect]
     Indication: ILL-DEFINED DISORDER
     Dosage: 150MG SINGLE DOSE
     Route: 065
     Dates: start: 20041117

REACTIONS (5)
  - ACCIDENTAL OVERDOSE [None]
  - DIZZINESS [None]
  - HYPERVENTILATION [None]
  - NAUSEA [None]
  - RETCHING [None]
